FAERS Safety Report 4290514-X (Version None)
Quarter: 2004Q1

REPORT INFORMATION
  Report Type: 
  Country: None (occurrence: None)
  Receive Date: 20040126
  Receipt Date: 20030922
  Transmission Date: 20041129
  Serious: No
  Sender: FDA-Public Use
  Company Number: USA030947961

PATIENT
  Age: 75 Year
  Sex: Female
  Weight: 55 kg

DRUGS (6)
  1. FORTEO [Suspect]
     Indication: OSTEOPOROSIS
     Dates: start: 20020908
  2. EVISTA [Concomitant]
  3. PREDNISONE [Concomitant]
  4. ZIAC [Concomitant]
  5. ASPIRIN [Concomitant]
  6. SYNTHROID [Concomitant]

REACTIONS (1)
  - INJECTION SITE ERYTHEMA [None]
